FAERS Safety Report 23177559 (Version 1)
Quarter: 2023Q4

REPORT INFORMATION
  Report Type: Spontaneous
  Country: US (occurrence: None)
  Receive Date: 20231112
  Receipt Date: 20231112
  Transmission Date: 20240109
  Serious: Yes (Other)
  Sender: FDA-Public Use
  Company Number: None

PATIENT
  Age: 45 Year
  Sex: Female
  Weight: 62.1 kg

DRUGS (1)
  1. VYVANSE [Suspect]
     Active Substance: LISDEXAMFETAMINE DIMESYLATE
     Indication: Attention deficit hyperactivity disorder
     Dosage: 30 MG DAILY ORAL?
     Route: 048
     Dates: start: 20180609

REACTIONS (3)
  - Nephrolithiasis [None]
  - Urethral haemorrhage [None]
  - Blood pressure increased [None]

NARRATIVE: CASE EVENT DATE: 20220219
